FAERS Safety Report 12643597 (Version 1)
Quarter: 2016Q3

REPORT INFORMATION
  Report Type: Spontaneous
  Country: US (occurrence: US)
  Receive Date: 20160811
  Receipt Date: 20160811
  Transmission Date: 20161109
  Serious: Yes (Hospitalization, Other)
  Sender: FDA-Public Use
  Company Number: PHEH2016US019816

PATIENT
  Sex: Female

DRUGS (1)
  1. LETROZOLE. [Suspect]
     Active Substance: LETROZOLE
     Indication: PRODUCT USED FOR UNKNOWN INDICATION
     Dosage: UNK
     Route: 065

REACTIONS (6)
  - Hot flush [Unknown]
  - Hypoaesthesia [Unknown]
  - Paraesthesia [Unknown]
  - Nausea [Unknown]
  - Renal failure [Unknown]
  - Pneumonia [Unknown]
